APPROVED DRUG PRODUCT: ACETAMINOPHEN AND CODEINE PHOSPHATE
Active Ingredient: ACETAMINOPHEN; CODEINE PHOSPHATE
Strength: 650MG;60MG
Dosage Form/Route: TABLET;ORAL
Application: A089363 | Product #001
Applicant: MIKART LLC
Approved: Sep 9, 1991 | RLD: No | RS: No | Type: DISCN